FAERS Safety Report 21309150 (Version 1)
Quarter: 2022Q3

REPORT INFORMATION
  Report Type: Spontaneous
  Country: US (occurrence: US)
  Receive Date: 20220908
  Receipt Date: 20220908
  Transmission Date: 20221026
  Serious: Yes (Other)
  Sender: FDA-Public Use
  Company Number: US-Blueprint Medicines Corporation-398

PATIENT
  Sex: Female

DRUGS (1)
  1. AYVAKIT [Suspect]
     Active Substance: AVAPRITINIB
     Indication: Systemic mastocytosis
     Route: 048

REACTIONS (7)
  - Hypothyroidism [Unknown]
  - Bradykinesia [Unknown]
  - Dysphonia [Unknown]
  - Fatigue [Unknown]
  - Personality change [Unknown]
  - Arthralgia [Unknown]
  - Thyroid function test abnormal [Unknown]
